FAERS Safety Report 8128965-5 (Version None)
Quarter: 2012Q1

REPORT INFORMATION
  Report Type: 
  Country: None (occurrence: None)
  Receive Date: 20120210
  Receipt Date: 20110705
  Transmission Date: 20120608
  Serious: No
  Sender: FDA-Public Use
  Company Number: US-BRISTOL-MYERS SQUIBB COMPANY-15877855

PATIENT
  Sex: Female
  Weight: 56 kg

DRUGS (1)
  1. ORENCIA [Suspect]

REACTIONS (2)
  - MALAISE [None]
  - WHITE BLOOD CELL COUNT DECREASED [None]
